FAERS Safety Report 9896812 (Version 1)
Quarter: 2014Q1

REPORT INFORMATION
  Report Type: Spontaneous
  Country: GB (occurrence: GB)
  Receive Date: 20140213
  Receipt Date: 20140213
  Transmission Date: 20141002
  Serious: Yes (Other)
  Sender: FDA-Public Use
  Company Number: GB-TEVA-460394ISR

PATIENT
  Sex: Female

DRUGS (18)
  1. LORATADINE [Suspect]
     Indication: ANGIOEDEMA
     Route: 048
  2. LORATADINE [Suspect]
     Indication: URTICARIA CHRONIC
  3. PREDNISOLONE [Suspect]
     Indication: ANGIOEDEMA
     Dosage: 25-40MG PER WEEK FOR 2-3 WEEKS
  4. PREDNISOLONE [Suspect]
     Indication: URTICARIA CHRONIC
  5. CETIRIZINE [Suspect]
     Indication: ANGIOEDEMA
  6. CETIRIZINE [Suspect]
     Indication: URTICARIA CHRONIC
  7. FEXOFENADINE [Suspect]
     Indication: ANGIOEDEMA
  8. FEXOFENADINE [Suspect]
     Indication: URTICARIA CHRONIC
  9. HYDROXYCHLOROQUINE SULFATE [Suspect]
     Indication: ANGIOEDEMA
     Dosage: 200 MILLIGRAM DAILY;
  10. HYDROXYCHLOROQUINE SULFATE [Suspect]
     Indication: URTICARIA CHRONIC
     Dosage: 400 MG, QD
  11. HYDROXYZINE [Suspect]
     Indication: ANGIOEDEMA
  12. HYDROXYZINE [Suspect]
     Indication: URTICARIA CHRONIC
  13. CYCLOSPORINE [Suspect]
     Indication: ANGIOEDEMA
     Dosage: 2.5 MG/KG
  14. CYCLOSPORINE [Suspect]
     Indication: URTICARIA CHRONIC
  15. DAPSONE [Suspect]
     Indication: ANGIOEDEMA
     Dosage: 100 MILLIGRAM DAILY; 50 MG, BID (50 MG PER WEEK)
  16. DAPSONE [Suspect]
     Indication: URTICARIA CHRONIC
  17. METHOTREXATE [Suspect]
     Indication: ANGIOEDEMA
     Route: 048
  18. METHOTREXATE [Suspect]
     Indication: URTICARIA CHRONIC

REACTIONS (6)
  - Angioedema [Unknown]
  - Urticaria [Unknown]
  - Asthma [Unknown]
  - Blood pressure increased [Unknown]
  - Drug effect incomplete [Unknown]
  - Drug ineffective [Unknown]
